FAERS Safety Report 5390076-X (Version None)
Quarter: 2007Q3

REPORT INFORMATION
  Report Type: 
  Country: None (occurrence: None)
  Receive Date: 20070718
  Receipt Date: 20070710
  Transmission Date: 20080115
  Serious: Yes (Hospitalization)
  Sender: FDA-Public Use
  Company Number: A0662831A

PATIENT
  Age: 55 Year
  Sex: Female

DRUGS (7)
  1. AVANDIA [Suspect]
     Dosage: 4MG PER DAY
     Route: 048
     Dates: start: 20050101, end: 20070606
  2. VIOXX [Concomitant]
  3. CELEBREX [Concomitant]
  4. LESCOL [Concomitant]
  5. THEOPHYLLINE [Concomitant]
  6. ALBUTEROL [Concomitant]
  7. SULAR [Concomitant]

REACTIONS (4)
  - CARDIAC DISORDER [None]
  - CEREBROVASCULAR ACCIDENT [None]
  - PAIN [None]
  - WEIGHT INCREASED [None]
